FAERS Safety Report 5472469-5 (Version None)
Quarter: 2007Q3

REPORT INFORMATION
  Report Type: 
  Country: None (occurrence: None)
  Receive Date: 20070926
  Receipt Date: 20070914
  Transmission Date: 20080115
  Serious: Yes (Hospitalization)
  Sender: FDA-Public Use
  Company Number: GXKR2007GB07998

PATIENT
  Age: 57 Year
  Sex: Female

DRUGS (3)
  1. ASPIRIN [Suspect]
     Indication: ACUTE CORONARY SYNDROME
  2. CLOPIDOGREL [Suspect]
     Indication: ACUTE CORONARY SYNDROME
  3. ENOXAPARIN SODIUM [Suspect]
     Indication: ACUTE CORONARY SYNDROME
     Dosage: 1 MG/KG, BID

REACTIONS (8)
  - C-REACTIVE PROTEIN INCREASED [None]
  - ELECTROCARDIOGRAM ST SEGMENT DEPRESSION [None]
  - HEADACHE [None]
  - NAUSEA [None]
  - PITUITARY HAEMORRHAGE [None]
  - PYREXIA [None]
  - VISUAL FIELD DEFECT [None]
  - VOMITING [None]
